FAERS Safety Report 14771180 (Version 1)
Quarter: 2018Q2

REPORT INFORMATION
  Report Type: Spontaneous
  Country: US (occurrence: US)
  Receive Date: 20180417
  Receipt Date: 20180417
  Transmission Date: 20180711
  Serious: No
  Sender: FDA-Public Use
  Company Number: US-ALLERGAN-1720683US

PATIENT
  Age: 72 Year
  Sex: Female

DRUGS (1)
  1. LUMIGAN [Suspect]
     Active Substance: BIMATOPROST
     Indication: GLAUCOMA
     Dosage: 2 GTT, QHS
     Route: 047
     Dates: start: 2014

REACTIONS (3)
  - Blepharitis [Not Recovered/Not Resolved]
  - Eye pruritus [Recovering/Resolving]
  - Eyelid rash [Not Recovered/Not Resolved]

NARRATIVE: CASE EVENT DATE: 201704
